FAERS Safety Report 8572250-4 (Version None)
Quarter: 2012Q3

REPORT INFORMATION
  Report Type: 
  Country: None (occurrence: None)
  Receive Date: 20120806
  Receipt Date: 20120801
  Transmission Date: 20120928
  Serious: Yes (Hospitalization, Other)
  Sender: FDA-Public Use
  Company Number: US-AMGEN-USASP2011036583

PATIENT
  Age: 56 Year
  Sex: Female

DRUGS (2)
  1. ENBREL [Suspect]
     Indication: RHEUMATOID ARTHRITIS
     Dosage: 50 MG, QWK
     Dates: start: 20000501
  2. ENBREL [Suspect]
     Dosage: 50 MG, QWK
     Dates: start: 20000501

REACTIONS (15)
  - GLAUCOMA [None]
  - WEIGHT INCREASED [None]
  - LIMB OPERATION [None]
  - INJECTION SITE MASS [None]
  - HAND DEFORMITY [None]
  - CATARACT [None]
  - BLOOD TEST ABNORMAL [None]
  - FALL [None]
  - DIZZINESS [None]
  - HYPOKINESIA [None]
  - GAIT DISTURBANCE [None]
  - NASOPHARYNGITIS [None]
  - BALANCE DISORDER [None]
  - BLINDNESS [None]
  - RHEUMATOID ARTHRITIS [None]
